FAERS Safety Report 6081747-0 (Version None)
Quarter: 2009Q1

REPORT INFORMATION
  Report Type: 
  Country: None (occurrence: None)
  Receive Date: 20090218
  Receipt Date: 20090205
  Transmission Date: 20090719
  Serious: Yes (Other)
  Sender: FDA-Public Use
  Company Number: GB-PFIZER INC-2009168455

PATIENT

DRUGS (1)
  1. CHAMPIX [Suspect]
     Indication: SMOKING CESSATION THERAPY
     Dosage: UNK
     Route: 048
     Dates: start: 20081020, end: 20081121

REACTIONS (5)
  - AMENORRHOEA [None]
  - ANXIETY [None]
  - DEPRESSION [None]
  - NIGHT SWEATS [None]
  - PARANOIA [None]
